FAERS Safety Report 12861732 (Version 1)
Quarter: 2016Q4

REPORT INFORMATION
  Report Type: Spontaneous
  Country: US (occurrence: US)
  Receive Date: 20161019
  Receipt Date: 20161019
  Transmission Date: 20170207
  Serious: No
  Sender: FDA-Public Use
  Company Number: US-PFIZER INC-2016486417

PATIENT
  Age: 50 Year
  Sex: Male
  Weight: 89 kg

DRUGS (1)
  1. LYRICA [Suspect]
     Active Substance: PREGABALIN
     Dosage: UNK

REACTIONS (12)
  - Paraesthesia [Unknown]
  - Insomnia [Unknown]
  - Agitation [Unknown]
  - Scratch [Unknown]
  - Pruritus [Unknown]
  - Pain [Unknown]
  - Formication [Unknown]
  - Neuropathy peripheral [Unknown]
  - Impaired work ability [Unknown]
  - Malaise [Unknown]
  - Burning sensation [Unknown]
  - Weight decreased [Unknown]

NARRATIVE: CASE EVENT DATE: 201411
